FAERS Safety Report 8411832-7 (Version None)
Quarter: 2012Q2

REPORT INFORMATION
  Report Type: 
  Country: None (occurrence: None)
  Receive Date: 20120531
  Receipt Date: 20120531
  Transmission Date: 20120825
  Serious: Yes (Hospitalization)
  Sender: FDA-Public Use
  Company Number: None

PATIENT
  Age: 57 Year
  Sex: Male
  Weight: 95.4 kg

DRUGS (2)
  1. PIPERACILLIN/TAZOBACTAM [Suspect]
     Indication: INFECTION
     Dosage: 3.375 GM QID IV
     Route: 042
     Dates: start: 20120102, end: 20120105
  2. VANCOMYCIN HCL [Suspect]
     Indication: INFECTION
     Dosage: 1500 MG BID IV
     Route: 042
     Dates: start: 20120102, end: 20120104

REACTIONS (3)
  - HYPERSENSITIVITY [None]
  - RENAL FAILURE ACUTE [None]
  - TUBULOINTERSTITIAL NEPHRITIS [None]
